FAERS Safety Report 21902525 (Version 4)
Quarter: 2024Q3

REPORT INFORMATION
  Report Type: Spontaneous
  Country: US (occurrence: US)
  Receive Date: 20230124
  Receipt Date: 20240717
  Transmission Date: 20241017
  Serious: Yes (Other)
  Sender: BRISTOL MYERS SQUIBB
  Company Number: US-BRISTOL-MYERS SQUIBB COMPANY-2023-010242

PATIENT
  Age: 77 Year
  Sex: Male
  Weight: 85.275 kg

DRUGS (4)
  1. REVLIMID [Suspect]
     Active Substance: LENALIDOMIDE
     Indication: Plasma cell myeloma
     Dosage: DAILY FOR 14DAYS
     Route: 048
  2. REVLIMID [Suspect]
     Active Substance: LENALIDOMIDE
     Indication: Plasma cell myeloma in remission
     Route: 048
  3. REVLIMID [Suspect]
     Active Substance: LENALIDOMIDE
     Route: 048
     Dates: start: 202302
  4. REVLIMID [Suspect]
     Active Substance: LENALIDOMIDE
     Dosage: TAKE 1 CAPSULE WHOLE BY MOUTH EVERY MORNING ON DAYS 1-21 THEN OFF FOR 7 DAYS. DO NOT START BEFORE JU
     Route: 048

REACTIONS (5)
  - Off label use [Unknown]
  - Blood potassium decreased [Recovering/Resolving]
  - Respiratory disorder [Recovering/Resolving]
  - Fatigue [Unknown]
  - Asthenia [Unknown]
